FAERS Safety Report 23513006 (Version 1)
Quarter: 2024Q1

REPORT INFORMATION
  Report Type: Spontaneous
  Country: GB (occurrence: GB)
  Receive Date: 20240212
  Receipt Date: 20240212
  Transmission Date: 20240410
  Serious: Yes (Other)
  Sender: FDA-Public Use
  Company Number: None

PATIENT
  Age: 37 Year
  Sex: Female
  Weight: 65 kg

DRUGS (1)
  1. BOCOUTURE [Suspect]
     Active Substance: BOTULINUM TOXIN TYPE A
     Indication: Product used for unknown indication
     Dates: start: 20240203, end: 20240203

REACTIONS (7)
  - Paraesthesia [Recovered/Resolved]
  - Tension headache [Recovered/Resolved]
  - Hypertension [Recovering/Resolving]
  - Muscular weakness [Recovered/Resolved]
  - Presyncope [Recovered/Resolved]
  - Chills [Recovered/Resolved]
  - Medication error [Unknown]

NARRATIVE: CASE EVENT DATE: 20240203
